FAERS Safety Report 5978695-0 (Version None)
Quarter: 2008Q4

REPORT INFORMATION
  Report Type: 
  Country: None (occurrence: None)
  Receive Date: 20081204
  Receipt Date: 20081202
  Transmission Date: 20090506
  Serious: Yes (Death)
  Sender: FDA-Public Use
  Company Number: GB-JNJFOC-20081200794

PATIENT
  Age: 59 Year

DRUGS (3)
  1. ABCIXIMAB [Suspect]
     Indication: INTRACRANIAL ANEURYSM
  2. HEPARIN [Concomitant]
     Dosage: CATHETERS WERE CONTINUOUSLY FLUSHED WITH 5 IU/MLML
  3. HEPARIN [Concomitant]

REACTIONS (1)
  - HAEMORRHAGE INTRACRANIAL [None]
